FAERS Safety Report 7119278-9 (Version None)
Quarter: 2010Q4

REPORT INFORMATION
  Report Type: 
  Country: None (occurrence: None)
  Receive Date: 20101123
  Receipt Date: 20101118
  Transmission Date: 20110411
  Serious: No
  Sender: FDA-Public Use
  Company Number: US-BAYER-201023662BCC

PATIENT
  Age: 64 Year
  Sex: Male
  Weight: 100 kg

DRUGS (10)
  1. ALEVE (CAPLET) [Suspect]
     Indication: ROTATOR CUFF SYNDROME
     Dosage: AS USED: 440 MG  UNIT DOSE: 220 MG
     Route: 048
     Dates: start: 20101118
  2. GLIPIZIDE [Concomitant]
  3. METFORMIN HCL [Concomitant]
  4. JANUVIA [Concomitant]
  5. DIOVAN [Concomitant]
  6. PREVACID [Concomitant]
  7. HYDROCHLOROTHIAZIDE [Concomitant]
  8. DIGOXIN [Concomitant]
  9. CADUET [Concomitant]
  10. ASPIRIN [Concomitant]

REACTIONS (2)
  - BLOOD GLUCOSE INCREASED [None]
  - VISUAL IMPAIRMENT [None]
